FAERS Safety Report 21902256 (Version 1)
Quarter: 2023Q1

REPORT INFORMATION
  Report Type: Spontaneous
  Country: US (occurrence: None)
  Receive Date: 20230124
  Receipt Date: 20230124
  Transmission Date: 20230418
  Serious: No
  Sender: FDA-Public Use
  Company Number: US-USWM, LLC-UWM202203-000008

PATIENT
  Age: 48 Year
  Sex: Female
  Weight: 64.86 kg

DRUGS (1)
  1. NADOLOL [Suspect]
     Active Substance: NADOLOL
     Indication: Product used for unknown indication
     Dosage: NOT PROVIDED

REACTIONS (2)
  - Somnolence [Unknown]
  - Dizziness [Unknown]
